FAERS Safety Report 17514411 (Version 13)
Quarter: 2021Q2

REPORT INFORMATION
  Report Type: Report from Study
  Country: US (occurrence: US)
  Receive Date: 20200307
  Receipt Date: 20210629
  Transmission Date: 20210716
  Serious: Yes (Other)
  Sender: FDA-Public Use
  Company Number: NVSC2020US064383

PATIENT
  Age: 49 Year
  Sex: Female

DRUGS (8)
  1. MAYZENT [Suspect]
     Active Substance: SIPONIMOD
     Dosage: 0.25 MG, QID
     Route: 048
     Dates: start: 20191101
  2. MAYZENT [Suspect]
     Active Substance: SIPONIMOD
     Dosage: 2 MG, QD
     Route: 048
  3. MAYZENT [Suspect]
     Active Substance: SIPONIMOD
     Dosage: 2 MG, QD
     Route: 048
     Dates: end: 20210601
  4. AMPYRA [Concomitant]
     Active Substance: DALFAMPRIDINE
     Indication: PRODUCT USED FOR UNKNOWN INDICATION
     Dosage: UNK
     Route: 065
  5. MAYZENT [Suspect]
     Active Substance: SIPONIMOD
     Dosage: 2 MG, QD
     Route: 048
     Dates: start: 202101
  6. MAYZENT [Suspect]
     Active Substance: SIPONIMOD
     Dosage: 1 MG, QD
     Route: 048
  7. MAYZENT [Suspect]
     Active Substance: SIPONIMOD
     Dosage: 2 MG, QD
     Route: 048
     Dates: start: 20200729
  8. MAYZENT [Suspect]
     Active Substance: SIPONIMOD
     Indication: SECONDARY PROGRESSIVE MULTIPLE SCLEROSIS
     Dosage: 0.25 MG, QD
     Route: 048
     Dates: start: 20190808

REACTIONS (18)
  - Blindness unilateral [Not Recovered/Not Resolved]
  - Pyrexia [Recovering/Resolving]
  - Fall [Recovering/Resolving]
  - Restless legs syndrome [Recovering/Resolving]
  - Depression [Not Recovered/Not Resolved]
  - Productive cough [Unknown]
  - Eyelid disorder [Recovering/Resolving]
  - Drug-induced liver injury [Not Recovered/Not Resolved]
  - Influenza like illness [Recovered/Resolved]
  - Back injury [Recovering/Resolving]
  - Limb injury [Recovering/Resolving]
  - Fatigue [Not Recovered/Not Resolved]
  - Disease progression [Not Recovered/Not Resolved]
  - Product dose omission issue [Not Recovered/Not Resolved]
  - Cough [Unknown]
  - Rhinorrhoea [Unknown]
  - Product prescribing error [Not Recovered/Not Resolved]
  - Head injury [Recovering/Resolving]

NARRATIVE: CASE EVENT DATE: 20200226
